FAERS Safety Report 5521466-X (Version None)
Quarter: 2007Q4

REPORT INFORMATION
  Report Type: 
  Country: None (occurrence: None)
  Receive Date: 20071119
  Receipt Date: 20071112
  Transmission Date: 20080405
  Serious: Yes (Death, Hospitalization, Other)
  Sender: FDA-Public Use
  Company Number: US-PFIZER INC-2007069972

PATIENT
  Sex: Male
  Weight: 75 kg

DRUGS (2)
  1. CELEBREX [Suspect]
     Indication: PAIN
     Route: 048
  2. CELEBREX [Suspect]
     Indication: RHEUMATOID ARTHRITIS

REACTIONS (4)
  - BRADYCARDIA [None]
  - CEREBROVASCULAR ACCIDENT [None]
  - MYOCARDIAL INFARCTION [None]
  - OCULAR VASCULAR DISORDER [None]
